FAERS Safety Report 7418030-4 (Version None)
Quarter: 2011Q2

REPORT INFORMATION
  Report Type: 
  Country: None (occurrence: None)
  Receive Date: 20110415
  Receipt Date: 20110412
  Transmission Date: 20111010
  Serious: Yes (Other)
  Sender: FDA-Public Use
  Company Number: BR-ROCHE-769669

PATIENT
  Sex: Female
  Weight: 62 kg

DRUGS (7)
  1. GINKGO BILOBA [Concomitant]
     Dates: start: 19900101
  2. DORMONID [Concomitant]
     Dosage: FREQUENCY: 1 TABLET BEFORE SLEEP
     Dates: start: 20101001
  3. LOSARTAN [Concomitant]
     Indication: BLOOD PRESSURE ABNORMAL
     Dates: start: 20060101
  4. PANTOCAL [Concomitant]
     Dosage: FREQUENCY: ONCE A DAY( NOT ALWAYS)
     Dates: start: 20110101
  5. RIVOTRIL [Suspect]
     Dosage: FREQUENCY: 1 TABLET 2 HRS BEFORE SLEEP
     Route: 065
     Dates: start: 20010101
  6. DIMETHICONE [Concomitant]
     Indication: FLATULENCE
     Dosage: FREQUENCY:AFTER MEALS
  7. VITAMIN E [Concomitant]
     Indication: OSTEOPOROSIS
     Dates: start: 19900101

REACTIONS (3)
  - DRUG INEFFECTIVE [None]
  - INSOMNIA [None]
  - CEREBROVASCULAR ACCIDENT [None]
